FAERS Safety Report 20521514 (Version 2)
Quarter: 2022Q1

REPORT INFORMATION
  Report Type: Spontaneous
  Country: US (occurrence: US)
  Receive Date: 20220226
  Receipt Date: 20220309
  Transmission Date: 20220424
  Serious: Yes (Other)
  Sender: FDA-Public Use
  Company Number: US-AMGEN-USASP2022031140

PATIENT
  Sex: Female

DRUGS (3)
  1. OTEZLA [Suspect]
     Active Substance: APREMILAST
     Indication: Psoriasis
     Dosage: UNK
     Route: 065
  2. STELARA [Concomitant]
     Active Substance: USTEKINUMAB
     Dosage: UNK
  3. ELIQUIS [Concomitant]
     Active Substance: APIXABAN
     Indication: Anticoagulant therapy
     Dosage: UNK
     Dates: end: 2021

REACTIONS (7)
  - Cardiac operation [Unknown]
  - Foot operation [Unknown]
  - Atrial fibrillation [Unknown]
  - Drug ineffective [Unknown]
  - Gait inability [Unknown]
  - Limb injury [Unknown]
  - Psoriasis [Unknown]
